FAERS Safety Report 6782687-1 (Version None)
Quarter: 2010Q2

REPORT INFORMATION
  Report Type: 
  Country: None (occurrence: None)
  Receive Date: 20100621
  Receipt Date: 20100610
  Transmission Date: 20101027
  Serious: Yes (Hospitalization)
  Sender: FDA-Public Use
  Company Number: FR-AMGEN-QUU419413

PATIENT
  Sex: Female

DRUGS (4)
  1. ENBREL [Suspect]
     Indication: ANKYLOSING SPONDYLITIS
     Dosage: UNKNOWN
     Route: 058
     Dates: start: 20080601, end: 20080901
  2. REMICADE [Suspect]
     Indication: ANKYLOSING SPONDYLITIS
     Dosage: 230 MG FOR THE FIRST CURE AND THEN, FOLLOWING DOSES WERE UNKNOWN
     Route: 042
     Dates: start: 20061108, end: 20080601
  3. HUMIRA [Suspect]
     Indication: ANKYLOSING SPONDYLITIS
     Dosage: UNKNOWN
     Route: 058
     Dates: start: 20081001, end: 20100201
  4. METHOTREXATE [Suspect]
     Indication: ANKYLOSING SPONDYLITIS
     Dosage: BETWEEN 5 MG AND 15 MG TOTAL WEEKLY, AND WITH A TEMPORARY DISCONTINUATION AT UNSPECIFIED DATES
     Route: 048
     Dates: start: 20020101, end: 20090101

REACTIONS (13)
  - ADVERSE EVENT [None]
  - ANKYLOSING SPONDYLITIS [None]
  - BRONCHITIS [None]
  - CONDITION AGGRAVATED [None]
  - DRUG EFFECT DECREASED [None]
  - GASTROINTESTINAL DISORDER [None]
  - LEUKOPENIA [None]
  - LYMPHOPENIA [None]
  - NEUTROPENIA [None]
  - PARAESTHESIA [None]
  - REFRACTORY ANAEMIA WITH AN EXCESS OF BLASTS [None]
  - SKIN REACTION [None]
  - SLEEP DISORDER [None]
